FAERS Safety Report 8482812-0 (Version None)
Quarter: 2012Q3

REPORT INFORMATION
  Report Type: 
  Country: None (occurrence: None)
  Receive Date: 20120702
  Receipt Date: 20120619
  Transmission Date: 20120928
  Serious: No
  Sender: FDA-Public Use
  Company Number: US-ASTRAZENECA-2012SE18768

PATIENT
  Age: 41 Year
  Sex: Female

DRUGS (1)
  1. SEROQUEL XR [Suspect]
     Route: 048

REACTIONS (10)
  - MALAISE [None]
  - CRYING [None]
  - PALPITATIONS [None]
  - DRUG DOSE OMISSION [None]
  - INTENTIONAL DRUG MISUSE [None]
  - ALOPECIA [None]
  - BIPOLAR DISORDER [None]
  - AGITATION [None]
  - NIGHT SWEATS [None]
  - WITHDRAWAL SYNDROME [None]
